FAERS Safety Report 19507505 (Version 2)
Quarter: 2021Q3

REPORT INFORMATION
  Report Type: Report from Study
  Country: BR (occurrence: BR)
  Receive Date: 20210708
  Receipt Date: 20210924
  Transmission Date: 20211014
  Serious: Yes (Hospitalization)
  Sender: FDA-Public Use
  Company Number: BR-SA-2020SA372704

PATIENT
  Age: 80 Year
  Sex: Male
  Weight: 62 kg

DRUGS (6)
  1. DUPILUMAB [Suspect]
     Active Substance: DUPILUMAB
     Indication: DERMATITIS ATOPIC
     Dosage: 300 MG, Q15D
     Route: 058
     Dates: start: 20200109
  2. DUPILUMAB [Suspect]
     Active Substance: DUPILUMAB
     Dosage: 300 MG, EVERY 45 DAYS
     Route: 058
  3. DUPILUMAB [Suspect]
     Active Substance: DUPILUMAB
     Dosage: 300 MG, QOW
     Route: 058
     Dates: start: 20210109
  4. COVID?19 VACCINE [Concomitant]
     Dosage: UNK
  5. DUPILUMAB [Suspect]
     Active Substance: DUPILUMAB
     Dosage: 300 MG, QM
     Route: 058
  6. DUPILUMAB [Suspect]
     Active Substance: DUPILUMAB
     Dosage: 300 MG, Q2M
     Route: 058

REACTIONS (9)
  - Off label use [Unknown]
  - Skin lesion [Not Recovered/Not Resolved]
  - Product use issue [Unknown]
  - Asthenia [Recovered/Resolved]
  - Scratch [Not Recovered/Not Resolved]
  - COVID-19 [Recovered/Resolved]
  - Lung disorder [Recovered/Resolved]
  - Dyspnoea [Recovered/Resolved]
  - Dermatitis atopic [Not Recovered/Not Resolved]

NARRATIVE: CASE EVENT DATE: 20200109
